FAERS Safety Report 7985895-7 (Version None)
Quarter: 2011Q4

REPORT INFORMATION
  Report Type: 
  Country: None (occurrence: None)
  Receive Date: 20111216
  Receipt Date: 20111206
  Transmission Date: 20120403
  Serious: Yes (Hospitalization)
  Sender: FDA-Public Use
  Company Number: US-BAYER-201026240NA

PATIENT
  Age: 29 Year
  Sex: Female
  Weight: 72.562 kg

DRUGS (14)
  1. EFFEXOR [Concomitant]
     Dosage: 75 MG, QD
     Route: 048
  2. HYDROCODONE BITARTRATE AND ACETAMINOPHEN [Concomitant]
     Dosage: 5/500 MG
     Dates: start: 20080909
  3. PENAZOPYRID [Concomitant]
     Dosage: 100 MG, UNK
     Route: 048
  4. MELOXICAM [Concomitant]
     Dosage: 7.5 MG, UNK
     Route: 048
  5. CIPROFLOXACIN [Concomitant]
     Dosage: UNK
     Dates: start: 20080909
  6. HYDROCODONE BITARTRATE AND ACETAMINOPHEN [Concomitant]
     Dosage: 5/500 MG
     Dates: start: 20080929
  7. BELLADONNA + DERIVAT. IN COMB. W PSYCHOLEP. [Concomitant]
     Dosage: UNK
     Dates: start: 20080919
  8. CYCLOBENZAPRINE [Concomitant]
     Dosage: 10 MG, UNK
     Route: 048
  9. ALPRAZOLAM [Concomitant]
     Dosage: 1 MG, UNK
     Route: 048
  10. YAZ [Suspect]
     Indication: CONTRACEPTION
     Dosage: 1 DF, QD
     Dates: start: 20040101, end: 20060101
  11. VENLAFAXINE [Concomitant]
     Dosage: 37.5 MG, UNK
     Route: 048
  12. DROSPIRENONE AND ETHINYL ESTRADIOL [Suspect]
     Indication: CONTRACEPTION
     Dosage: 1 DF, QD
     Route: 048
     Dates: start: 20020101, end: 20040101
  13. DROSPIRENONE AND ETHINYL ESTRADIOL [Suspect]
     Dosage: UNK
     Dates: start: 20081101, end: 20091201
  14. YASMIN [Suspect]
     Indication: CONTRACEPTION
     Dosage: 1 DF, QD
     Dates: start: 20060101, end: 20080101

REACTIONS (7)
  - CHOLESTEROSIS [None]
  - BILIARY DYSKINESIA [None]
  - VOMITING [None]
  - CHOLECYSTITIS [None]
  - NAUSEA [None]
  - ABDOMINAL PAIN UPPER [None]
  - CHOLELITHIASIS [None]
